FAERS Safety Report 6703890-2 (Version None)
Quarter: 2010Q2

REPORT INFORMATION
  Report Type: 
  Country: None (occurrence: None)
  Receive Date: 20100428
  Receipt Date: 20100420
  Transmission Date: 20101027
  Serious: Yes (Disabling)
  Sender: FDA-Public Use
  Company Number: 567984

PATIENT
  Age: 16 Month

DRUGS (9)
  1. PENTOTHAL [Suspect]
     Indication: STATUS EPILEPTICUS
     Dosage: 4 MG/KG MILLIGRAM(S) / KILOGRAM,
  2. (STIRIPENTOL) [Suspect]
     Indication: STATUS EPILEPTICUS
     Dosage: 62 MG/KG MILLIGRAM(S) / KILOGRAM,
  3. (PHENOBARBITAL) [Suspect]
     Indication: STATUS EPILEPTICUS
     Dosage: 15 MG/KG MILLIGRAM(S) / KILOGRAM,; 10 MG/KG MILLIGRAM(S) / KILOGRAM,
  4. VALPROATE SODIUM [Concomitant]
  5. (CLOBAZAM) [Concomitant]
  6. (DIAZEPAM) [Concomitant]
  7. MIDAZOLAM HCL [Concomitant]
  8. (PHENYTOIN) [Concomitant]
  9. CLONAZEPAM [Concomitant]

REACTIONS (10)
  - APHASIA [None]
  - ARRHYTHMIA [None]
  - CENTRAL NERVOUS SYSTEM LESION [None]
  - CEREBRAL ATROPHY [None]
  - CEREBRAL ISCHAEMIA [None]
  - CIRCULATORY COLLAPSE [None]
  - DECREASED EYE CONTACT [None]
  - DRUG INTERACTION [None]
  - HYPOTONIA [None]
  - SPASTIC PARALYSIS [None]
